FAERS Safety Report 8775821 (Version 1)
Quarter: 2012Q4

REPORT INFORMATION
  Report Type: Report from Study
  Country: GB (occurrence: GB)
  Receive Date: 20120910
  Receipt Date: 20120910
  Transmission Date: 20130627
  Serious: Yes (Other)
  Sender: FDA-Public Use
  Company Number: GB-ASTRAZENECA-2012SE66014

PATIENT
  Age: 23255 Day
  Sex: Female

DRUGS (6)
  1. ARIMIDEX [Suspect]
     Indication: NEOPLASM PROPHYLAXIS
     Route: 048
     Dates: start: 20111013
  2. BENDROFLUAIZIDE [Concomitant]
  3. AMLODIPINE [Concomitant]
  4. CITALOPRAM [Concomitant]
  5. LORATIDINE [Concomitant]
  6. SENOCOT [Concomitant]

REACTIONS (1)
  - Vasculitic rash [Not Recovered/Not Resolved]
